FAERS Safety Report 19767652 (Version 1)
Quarter: 2021Q3

REPORT INFORMATION
  Report Type: Spontaneous
  Country: US (occurrence: US)
  Receive Date: 20210826
  Receipt Date: 20210826
  Transmission Date: 20211014
  Serious: No
  Sender: FDA-Public Use
  Company Number: None

PATIENT
  Sex: Female

DRUGS (1)
  1. BENLYSTA [Suspect]
     Active Substance: BELIMUMAB
     Indication: MULTIPLE SCLEROSIS
     Route: 058
     Dates: start: 202004

REACTIONS (2)
  - Joint swelling [None]
  - Peripheral swelling [None]
